FAERS Safety Report 14942550 (Version 2)
Quarter: 2018Q2

REPORT INFORMATION
  Report Type: Spontaneous
  Country: US (occurrence: US)
  Receive Date: 20180528
  Receipt Date: 20180620
  Transmission Date: 20180711
  Serious: No
  Sender: FDA-Public Use
  Company Number: US-009507513-1805USA000793

PATIENT
  Sex: Female
  Weight: 104.31 kg

DRUGS (1)
  1. ETONOGESTREL IMPLANT- UNKNOWN [Suspect]
     Active Substance: ETONOGESTREL
     Dosage: 2 IMPLANT, UNK
     Route: 059
     Dates: start: 2011, end: 20180430

REACTIONS (4)
  - Incorrect drug administration duration [Unknown]
  - Overdose [Unknown]
  - Device use error [Unknown]
  - No adverse event [Unknown]

NARRATIVE: CASE EVENT DATE: 2011
